FAERS Safety Report 13996779 (Version 2)
Quarter: 2018Q2

REPORT INFORMATION
  Report Type: Spontaneous
  Country: US (occurrence: US)
  Receive Date: 20170921
  Receipt Date: 20180502
  Transmission Date: 20180711
  Serious: Yes (Other)
  Sender: FDA-Public Use
  Company Number: US-PFIZER INC-2017406747

PATIENT
  Age: 75 Year
  Sex: Female

DRUGS (2)
  1. PALBOCICLIB [Suspect]
     Active Substance: PALBOCICLIB
     Indication: BONE LESION
     Dosage: 125 MG, CYCLIC (21 DAYS ON, 7 DAYS OFF)
  2. LETROZOLE. [Suspect]
     Active Substance: LETROZOLE
     Indication: BONE LESION
     Dosage: 125 MG, CYCLIC (21 DAYS ON, 7 DAYS OFF)

REACTIONS (1)
  - Neutrophil count decreased [Recovered/Resolved]
